FAERS Safety Report 12626955 (Version 1)
Quarter: 2016Q3

REPORT INFORMATION
  Report Type: Spontaneous
  Country: BR (occurrence: BR)
  Receive Date: 20160805
  Receipt Date: 20160805
  Transmission Date: 20161109
  Serious: Yes (Other)
  Sender: FDA-Public Use
  Company Number: BR-009507513-1608BRA002663

PATIENT
  Age: 48 Year

DRUGS (7)
  1. PACLITAXEL. [Concomitant]
     Active Substance: PACLITAXEL
     Indication: LUNG ADENOCARCINOMA
     Dosage: 6 CYCLES
     Dates: start: 20130222, end: 20130607
  2. EMEND [Suspect]
     Active Substance: APREPITANT
     Indication: LUNG ADENOCARCINOMA
     Dosage: 6 CYCLES
     Route: 048
     Dates: start: 20130222, end: 20130607
  3. NEULASTA [Concomitant]
     Active Substance: PEGFILGRASTIM
     Indication: LUNG ADENOCARCINOMA
     Dosage: 6 CYCLES
     Dates: start: 20130222, end: 20130607
  4. BEVACIZUMAB [Concomitant]
     Active Substance: BEVACIZUMAB
     Dosage: UNK, CYCLICAL
     Dates: start: 20130628, end: 20150320
  5. CARBOPLATIN. [Concomitant]
     Active Substance: CARBOPLATIN
     Indication: LUNG ADENOCARCINOMA
     Dosage: 6 CYCLES
     Dates: start: 20130222, end: 20130607
  6. BEVACIZUMAB [Concomitant]
     Active Substance: BEVACIZUMAB
     Indication: LUNG ADENOCARCINOMA
     Dosage: 6 CYCLES
     Dates: start: 20130222, end: 20130607
  7. BEVACIZUMAB [Concomitant]
     Active Substance: BEVACIZUMAB
     Dosage: 8 CYCLES
     Dates: start: 20150410, end: 20150902

REACTIONS (4)
  - Lung adenocarcinoma metastatic [Unknown]
  - Pleural effusion [Unknown]
  - Metastases to pleura [Unknown]
  - Product use issue [Unknown]

NARRATIVE: CASE EVENT DATE: 20130222
